FAERS Safety Report 8025301-X (Version None)
Quarter: 2012Q1

REPORT INFORMATION
  Report Type: 
  Country: None (occurrence: None)
  Receive Date: 20120105
  Receipt Date: 20120103
  Transmission Date: 20120608
  Serious: Yes (Hospitalization)
  Sender: FDA-Public Use
  Company Number: MX-ABBOTT-11P-107-0856905-00

PATIENT
  Age: 40 Year
  Sex: Male
  Weight: 48 kg

DRUGS (3)
  1. HUMIRA [Suspect]
     Indication: ANKYLOSING SPONDYLITIS
     Route: 058
     Dates: start: 20110101, end: 20110928
  2. SULFASALAZINE [Concomitant]
     Indication: PRODUCT USED FOR UNKNOWN INDICATION
     Dosage: 3 GRAM DAILY
  3. METHOTREXATE [Concomitant]
     Indication: ANKYLOSING SPONDYLITIS
     Route: 030

REACTIONS (8)
  - PYREXIA [None]
  - MALAISE [None]
  - ANAEMIA [None]
  - TUBERCULOSIS [None]
  - CHILLS [None]
  - C-REACTIVE PROTEIN INCREASED [None]
  - WEIGHT DECREASED [None]
  - UVEITIS [None]
